FAERS Safety Report 25025949 (Version 1)
Quarter: 2025Q1

REPORT INFORMATION
  Report Type: Spontaneous
  Country: MY (occurrence: MY)
  Receive Date: 20250301
  Receipt Date: 20250301
  Transmission Date: 20250408
  Serious: No
  Sender: ANI
  Company Number: MY-ANIPHARMA-015754

PATIENT
  Sex: Female

DRUGS (1)
  1. FLUVOXAMINE [Suspect]
     Active Substance: FLUVOXAMINE
     Indication: Major depression
     Route: 048

REACTIONS (1)
  - Vision blurred [Recovered/Resolved]
